FAERS Safety Report 9381317 (Version 1)
Quarter: 2013Q3

REPORT INFORMATION
  Report Type: Spontaneous
  Country: US (occurrence: US)
  Receive Date: 20130703
  Receipt Date: 20130703
  Transmission Date: 20140515
  Serious: No
  Sender: FDA-Public Use
  Company Number: US-GENZYME-FABR-1003392

PATIENT
  Sex: Female

DRUGS (1)
  1. FABRAZYME [Suspect]
     Indication: FABRY^S DISEASE
     Dosage: 105 MG, Q2W
     Route: 042
     Dates: start: 201203

REACTIONS (1)
  - Systemic lupus erythematosus [Not Recovered/Not Resolved]
